FAERS Safety Report 8008210-1 (Version None)
Quarter: 2011Q4

REPORT INFORMATION
  Report Type: 
  Country: None (occurrence: None)
  Receive Date: 20111227
  Receipt Date: 20111216
  Transmission Date: 20120403
  Serious: Yes (Death)
  Sender: FDA-Public Use
  Company Number: DE-JNJFOC-20111209825

PATIENT
  Age: 68 Year
  Sex: Female
  Weight: 62 kg

DRUGS (2)
  1. NOVALGIN [Concomitant]
     Indication: PAIN
     Route: 048
     Dates: end: 20110701
  2. IBUPROFEN [Suspect]
     Indication: PAIN
     Route: 048
     Dates: end: 20110629

REACTIONS (5)
  - HEPATIC FAILURE [None]
  - PROTEIN-LOSING GASTROENTEROPATHY [None]
  - COMA HEPATIC [None]
  - HEPATIC ENCEPHALOPATHY [None]
  - CHOLESTASIS [None]
